FAERS Safety Report 4920205-0 (Version None)
Quarter: 2006Q1

REPORT INFORMATION
  Report Type: 
  Country: None (occurrence: None)
  Receive Date: 20060223
  Receipt Date: 20060216
  Transmission Date: 20060701
  Serious: Yes (Other)
  Sender: FDA-Public Use
  Company Number: 2006CG00353

PATIENT
  Age: 56 Year
  Sex: Female

DRUGS (9)
  1. OMEPRAZOLE [Suspect]
     Indication: GASTROOESOPHAGEAL REFLUX DISEASE
     Route: 048
     Dates: start: 19820101, end: 20000101
  2. OMEPRAZOLE [Suspect]
     Indication: OESOPHAGITIS
     Route: 048
     Dates: start: 19820101, end: 20000101
  3. OMEPRAZOLE [Suspect]
     Route: 048
     Dates: start: 20000101
  4. OMEPRAZOLE [Suspect]
     Route: 048
     Dates: start: 20000101
  5. CORVASAL [Concomitant]
     Indication: CORONARY ARTERY INSUFFICIENCY
  6. ISOPTIN [Concomitant]
     Indication: CORONARY ARTERY INSUFFICIENCY
  7. ASPIRIN [Concomitant]
     Indication: CORONARY ARTERY INSUFFICIENCY
  8. GAVISCON [Concomitant]
  9. BACTRIM [Concomitant]
     Indication: LYMPHOPENIA
     Dates: start: 20051101

REACTIONS (1)
  - LYMPHOPENIA [None]
